FAERS Safety Report 15829671 (Version 1)
Quarter: 2019Q1

REPORT INFORMATION
  Report Type: Spontaneous
  Country: US (occurrence: US)
  Receive Date: 20190115
  Receipt Date: 20190115
  Transmission Date: 20190417
  Serious: No
  Sender: FDA-Public Use
  Company Number: US-ALLERGAN-1849294US

PATIENT
  Sex: Female

DRUGS (7)
  1. UNSPECIFIED STEROIDS [Concomitant]
     Active Substance: UNSPECIFIED INGREDIENT
     Dosage: UNK
  2. UNSPECIFIED ALLERGY PRESCRIPTION MEDICATIONS [Concomitant]
     Indication: HYPERSENSITIVITY
     Dosage: UNK
  3. ACCUPRO [Concomitant]
     Active Substance: QUINAPRIL HYDROCHLORIDE
     Dosage: UNK
  4. VALTREX [Concomitant]
     Active Substance: VALACYCLOVIR HYDROCHLORIDE
     Dosage: UNK
  5. UNSPECIFIED OTC ALLERGY MEDICATIONS [Concomitant]
     Indication: HYPERSENSITIVITY
     Dosage: UNK
  6. FLUOROMETHOLONE. [Concomitant]
     Active Substance: FLUOROMETHOLONE
     Dosage: UNK
     Dates: start: 201711
  7. RESTASIS [Suspect]
     Active Substance: CYCLOSPORINE
     Indication: DRY EYE
     Dosage: 2 GTT, BID
     Route: 047
     Dates: start: 201807

REACTIONS (2)
  - Product dropper issue [Unknown]
  - Accidental exposure to product [Unknown]
